FAERS Safety Report 8369727-3 (Version None)
Quarter: 2012Q2

REPORT INFORMATION
  Report Type: 
  Country: None (occurrence: None)
  Receive Date: 20120518
  Receipt Date: 20120508
  Transmission Date: 20120825
  Serious: Yes (Hospitalization)
  Sender: FDA-Public Use
  Company Number: TR-SANOFI-AVENTIS-2012SA034522

PATIENT
  Age: 15 Month
  Sex: Male

DRUGS (3)
  1. VANCOMYCIN [Suspect]
     Indication: LUNG INFECTION
     Route: 065
  2. CEFOTAXIME [Suspect]
     Indication: LUNG INFECTION
     Route: 065
  3. AMIKACIN [Suspect]
     Indication: LUNG INFECTION
     Route: 065

REACTIONS (7)
  - RASH MACULO-PAPULAR [None]
  - RED BLOOD CELL SEDIMENTATION RATE INCREASED [None]
  - DRUG RASH WITH EOSINOPHILIA AND SYSTEMIC SYMPTOMS [None]
  - EOSINOPHILIA [None]
  - LYMPHADENOPATHY [None]
  - PYREXIA [None]
  - ASPARTATE AMINOTRANSFERASE INCREASED [None]
